FAERS Safety Report 5458449-4 (Version None)
Quarter: 2007Q3

REPORT INFORMATION
  Report Type: 
  Country: None (occurrence: None)
  Receive Date: 20070919
  Receipt Date: 20070322
  Transmission Date: 20080115
  Serious: No
  Sender: FDA-Public Use
  Company Number: US-ASTRAZENECA-2007UW05914

PATIENT
  Age: 215 Month
  Sex: Female
  Weight: 61.2 kg

DRUGS (2)
  1. SEROQUEL [Suspect]
     Indication: BIPOLAR DISORDER
     Route: 048
     Dates: start: 20060701, end: 20070301
  2. PAXIL [Concomitant]

REACTIONS (7)
  - ABDOMINAL PAIN UPPER [None]
  - AGGRESSION [None]
  - AGITATION [None]
  - ANGER [None]
  - FEELING COLD [None]
  - FEELING HOT [None]
  - MALAISE [None]
